FAERS Safety Report 15042562 (Version 1)
Quarter: 2018Q2

REPORT INFORMATION
  Report Type: Report from Study
  Country: US (occurrence: US)
  Receive Date: 20180621
  Receipt Date: 20180621
  Transmission Date: 20180711
  Serious: Yes (Death, Hospitalization)
  Sender: FDA-Public Use
  Company Number: PHHO2015US002097

PATIENT
  Age: 70 Year
  Sex: Male
  Weight: 78.46 kg

DRUGS (3)
  1. VELCADE [Suspect]
     Active Substance: BORTEZOMIB
     Indication: PLASMA CELL MYELOMA
     Dosage: 2.5 MG, UNK (1.3 MG/M2 TWICE WEEKLY)
     Route: 058
     Dates: start: 20150119, end: 20150126
  2. FARYDAK [Suspect]
     Active Substance: PANOBINOSTAT
     Indication: PLASMA CELL MYELOMA
     Dosage: 20 MG, Q3W
     Route: 048
     Dates: start: 20150119, end: 20150126
  3. DEXAMETHASONE. [Suspect]
     Active Substance: DEXAMETHASONE
     Indication: PLASMA CELL MYELOMA
     Dosage: 20 MG, UNK (ON THE DAYS OF AND AFTER BORTEZOMIB TREATMENT)
     Route: 065
     Dates: start: 20150119

REACTIONS (2)
  - Pneumonia [Fatal]
  - Respiratory arrest [Fatal]

NARRATIVE: CASE EVENT DATE: 20150206
